FAERS Safety Report 16260499 (Version 3)
Quarter: 2019Q2

REPORT INFORMATION
  Report Type: Spontaneous
  Country: US (occurrence: US)
  Receive Date: 20190501
  Receipt Date: 20190527
  Transmission Date: 20190711
  Serious: No
  Sender: FDA-Public Use
  Company Number: US-SHIRE-US201914280

PATIENT
  Age: 83 Year
  Sex: Female

DRUGS (1)
  1. XIIDRA [Suspect]
     Active Substance: LIFITEGRAST
     Indication: DRY EYE
     Dosage: 1 GTT DROPS, 2X/DAY:BID
     Route: 047
     Dates: start: 20190422

REACTIONS (8)
  - Visual impairment [Unknown]
  - Product use complaint [Unknown]
  - Photophobia [Unknown]
  - Vision blurred [Unknown]
  - Instillation site reaction [Unknown]
  - Nervousness [Unknown]
  - Product packaging quantity issue [Unknown]
  - Incorrect dose administered [Unknown]
